FAERS Safety Report 8561810-2 (Version None)
Quarter: 2012Q3

REPORT INFORMATION
  Report Type: 
  Country: None (occurrence: None)
  Receive Date: 20120802
  Receipt Date: 20120112
  Transmission Date: 20120928
  Serious: Yes (Other)
  Sender: FDA-Public Use
  Company Number: US-ROCHE-1096095

PATIENT
  Sex: Female

DRUGS (1)
  1. XOLAIR [Suspect]
     Indication: ASTHMA
     Route: 065

REACTIONS (4)
  - TOTAL LUNG CAPACITY DECREASED [None]
  - MUSCULOSKELETAL PAIN [None]
  - DRUG INEFFECTIVE [None]
  - ADVERSE REACTION [None]
